FAERS Safety Report 14567419 (Version 4)
Quarter: 2018Q2

REPORT INFORMATION
  Report Type: Spontaneous
  Country: IT (occurrence: IT)
  Receive Date: 20180223
  Receipt Date: 20180612
  Transmission Date: 20180711
  Serious: Yes (Other)
  Sender: FDA-Public Use
  Company Number: IT-MYLANLABS-2018M1011762

PATIENT
  Age: 78 Year
  Sex: Male

DRUGS (23)
  1. VINCRISTINE [Suspect]
     Active Substance: VINCRISTINE
     Indication: HIGH-GRADE B-CELL LYMPHOMA
     Dosage: 1 DF, CYCLE
  2. CYCLOPHOSPHAMIDE. [Suspect]
     Active Substance: CYCLOPHOSPHAMIDE
     Indication: HIGH-GRADE B-CELL LYMPHOMA
     Dosage: 1 DF, CYCLE
     Route: 065
  3. CYCLOPHOSPHAMIDE. [Suspect]
     Active Substance: CYCLOPHOSPHAMIDE
     Dosage: 1 DF, QW (R-VNCOP-B)
     Route: 065
  4. MABTHERA [Suspect]
     Active Substance: RITUXIMAB
     Indication: HIGH-GRADE B-CELL LYMPHOMA
     Dosage: 1 DF, CYCLE (EVERY 2 WEEKS R-VNCOP-B)
     Route: 042
  5. RITUXIMAB. [Suspect]
     Active Substance: RITUXIMAB
     Indication: HIGH-GRADE B-CELL LYMPHOMA
     Dosage: 1 DF, CYCLE, EVERY TWO WEEKS
     Route: 042
  6. PREDNISONE. [Suspect]
     Active Substance: PREDNISONE
     Indication: HIGH-GRADE B-CELL LYMPHOMA
     Dosage: 1 DF, CYCLE (4 WEEKLY COURSE)
     Route: 065
  7. PREDNISONE. [Suspect]
     Active Substance: PREDNISONE
     Dosage: 1 DF, QW (4 WEEKLY COURSE)
     Route: 065
  8. MITOXANTRONE [Suspect]
     Active Substance: MITOXANTRONE HYDROCHLORIDE
     Dosage: 1 DF, QW ((4 WEEKLY COURSES)
  9. MITOXANTRONE [Suspect]
     Active Substance: MITOXANTRONE HYDROCHLORIDE
     Dosage: 1 DF, QW (R-VNCOP-B)
  10. IDROCORTISONE [Concomitant]
     Indication: PREMEDICATION
     Dosage: UNK
     Route: 042
  11. ETOPOSIDE. [Suspect]
     Active Substance: ETOPOSIDE
     Indication: B-CELL LYMPHOMA
     Dosage: 1 DF, QW (CYCLIC)
  12. MITOXANTRONE [Suspect]
     Active Substance: MITOXANTRONE HYDROCHLORIDE
     Indication: HIGH-GRADE B-CELL LYMPHOMA
     Dosage: 1 DF, CYCLE
  13. PARACETAMOL [Concomitant]
     Active Substance: ACETAMINOPHEN
     Indication: PREMEDICATION
     Dosage: UNK
     Route: 042
  14. BLEOMYCIN [Suspect]
     Active Substance: BLEOMYCIN SULFATE
     Indication: B-CELL LYMPHOMA
     Dosage: 1 DF, QW (4 WEEKLY COURSES)
     Route: 065
  15. LAMIVUDINE. [Concomitant]
     Active Substance: LAMIVUDINE
     Indication: ANTIVIRAL PROPHYLAXIS
     Dosage: 100 MG, QD
  16. BLEOMYCIN [Suspect]
     Active Substance: BLEOMYCIN SULFATE
     Indication: HIGH-GRADE B-CELL LYMPHOMA
     Dosage: 1 DF, CYCLE
     Route: 065
  17. TRIMETHOPRIM SULFAMETHOXAZOLE [Concomitant]
     Active Substance: SULFAMETHOXAZOLE\TRIMETHOPRIM
     Indication: ANTIFUNGAL PROPHYLAXIS
     Dosage: 1 DF, BID, TWICE A WEEK
  18. ETOPOSIDE. [Suspect]
     Active Substance: ETOPOSIDE
     Indication: HIGH-GRADE B-CELL LYMPHOMA
     Dosage: 1 DF, CYCLE
  19. VINCRISTINE [Suspect]
     Active Substance: VINCRISTINE
     Indication: B-CELL LYMPHOMA
     Dosage: 1 DF, QW (4 WEEKLY COURSES)
  20. LAMIVUDINE. [Concomitant]
     Active Substance: LAMIVUDINE
     Indication: ANTIVIRAL PROPHYLAXIS
  21. CHLORPHENAMINE [Concomitant]
     Active Substance: CHLORPHENIRAMINE MALEATE
     Indication: PREMEDICATION
     Dosage: UNK
     Route: 042
  22. CYCLOPHOSPHAMIDE. [Suspect]
     Active Substance: CYCLOPHOSPHAMIDE
     Indication: B-CELL LYMPHOMA
     Dosage: 1 DF, QW (4 WEEKLY COURSES)
     Route: 065
  23. BLEOMYCIN [Suspect]
     Active Substance: BLEOMYCIN SULFATE
     Dosage: 1 DF, QW (R-VNCOP-B)
     Route: 065

REACTIONS (3)
  - Thrombocytopenia [Recovered/Resolved]
  - Anaemia [Recovered/Resolved]
  - Neutropenia [Recovered/Resolved]
